FAERS Safety Report 6600606-5 (Version None)
Quarter: 2010Q1

REPORT INFORMATION
  Report Type: 
  Country: None (occurrence: None)
  Receive Date: 20100223
  Receipt Date: 20100223
  Transmission Date: 20100710
  Serious: Yes (Death)
  Sender: FDA-Public Use
  Company Number: None

PATIENT
  Age: 53 Year
  Sex: Male
  Weight: 90.7194 kg

DRUGS (2)
  1. WELLBUTRIN [Suspect]
     Indication: ANXIETY
     Dosage: 300 MG 1/DAY 047 (ORAL)
     Route: 048
     Dates: start: 20100118, end: 20100211
  2. WELLBUTRIN [Suspect]
     Indication: DEPRESSION
     Dosage: 300 MG 1/DAY 047 (ORAL)
     Route: 048
     Dates: start: 20100118, end: 20100211

REACTIONS (3)
  - ASPHYXIA [None]
  - COMPLETED SUICIDE [None]
  - TREMOR [None]
